FAERS Safety Report 10568126 (Version 5)
Quarter: 2015Q3

REPORT INFORMATION
  Report Type: Report from Study
  Country: DE (occurrence: DE)
  Receive Date: 20141106
  Receipt Date: 20150721
  Transmission Date: 20151125
  Serious: Yes (Death, Life-Threatening, Hospitalization)
  Sender: FDA-Public Use
  Company Number: PHHO2014DE013075

PATIENT
  Age: 66 Year
  Sex: Male

DRUGS (6)
  1. MYFORTIC [Suspect]
     Active Substance: MYCOPHENOLATE SODIUM
     Indication: RENAL TRANSPLANT
     Dosage: 720 MG, BID
     Route: 048
     Dates: start: 20140918
  2. SIMULECT [Suspect]
     Active Substance: BASILIXIMAB
     Indication: RENAL TRANSPLANT
     Dosage: 20 MG
     Route: 042
     Dates: start: 20140918
  3. THYMOGLOBULIN [Suspect]
     Active Substance: LAPINE T-LYMPHOCYTE IMMUNE GLOBULIN
     Indication: RENAL TRANSPLANT
     Dosage: 75 MG
     Route: 065
     Dates: start: 20140918
  4. SANDIMMUNE NEORAL [Suspect]
     Active Substance: CYCLOSPORINE
     Indication: RENAL TRANSPLANT
     Dosage: 150 MG, BID
     Route: 048
     Dates: start: 20140918
  5. CERTICAN [Suspect]
     Active Substance: EVEROLIMUS
     Indication: RENAL TRANSPLANT
     Dosage: 1 MG, BID
     Route: 048
     Dates: start: 20140919, end: 20140926
  6. DECORTIN [Concomitant]
     Active Substance: PREDNISONE
     Indication: RENAL TRANSPLANT
     Dosage: 80 MG, QD
     Route: 042
     Dates: start: 20140918, end: 20141028

REACTIONS (6)
  - Renal transplant failure [Fatal]
  - Complications of transplanted kidney [Not Recovered/Not Resolved]
  - Atypical pneumonia [Fatal]
  - Cytomegalovirus infection [Not Recovered/Not Resolved]
  - Bronchopulmonary aspergillosis [Fatal]
  - Septic shock [Fatal]

NARRATIVE: CASE EVENT DATE: 20140918
